FAERS Safety Report 7001653-4 (Version None)
Quarter: 2010Q3

REPORT INFORMATION
  Report Type: 
  Country: None (occurrence: None)
  Receive Date: 20100920
  Receipt Date: 20100909
  Transmission Date: 20110219
  Serious: Yes (Other)
  Sender: FDA-Public Use
  Company Number: BR-JNJFOC-20100706703

PATIENT
  Sex: Female
  Weight: 85 kg

DRUGS (8)
  1. REMICADE [Suspect]
     Indication: RHEUMATOID ARTHRITIS
     Route: 042
  2. REMICADE [Suspect]
     Route: 042
  3. REMICADE [Suspect]
     Route: 042
  4. ARADOIS [Concomitant]
     Indication: HYPERTENSION
     Route: 048
  5. FLUOXETINE [Concomitant]
     Indication: DEPRESSION
     Route: 048
  6. FLUOXETINE [Concomitant]
     Route: 048
  7. JANUVIA [Concomitant]
     Indication: DIABETES MELLITUS
     Route: 048
  8. NEBIVOLOL HCL [Concomitant]
     Route: 048

REACTIONS (4)
  - ANXIETY [None]
  - HYPERTENSIVE CRISIS [None]
  - SOMNOLENCE [None]
  - TACHYCARDIA [None]
